FAERS Safety Report 6993848-0 (Version None)
Quarter: 2010Q3

REPORT INFORMATION
  Report Type: 
  Country: None (occurrence: None)
  Receive Date: 20100917
  Receipt Date: 20091009
  Transmission Date: 20110219
  Serious: No
  Sender: FDA-Public Use
  Company Number: US-ASTRAZENECA-2007UW12067

PATIENT
  Age: 42 Year
  Sex: Female
  Weight: 108.9 kg

DRUGS (39)
  1. SEROQUEL [Suspect]
     Indication: DEPRESSION
     Dosage: 400 MG
     Route: 048
     Dates: start: 20040401, end: 20051001
  2. SEROQUEL [Suspect]
     Indication: SCHIZOPHRENIA
     Dosage: 400 MG
     Route: 048
     Dates: start: 20040401, end: 20051001
  3. SEROQUEL [Suspect]
     Indication: BIPOLAR DISORDER
     Dosage: 400 MG
     Route: 048
     Dates: start: 20040401, end: 20051001
  4. SEROQUEL [Suspect]
     Indication: INSOMNIA
     Dosage: 400 MG
     Route: 048
     Dates: start: 20040401, end: 20051001
  5. SEROQUEL [Suspect]
     Route: 048
     Dates: start: 20040401, end: 20040801
  6. SEROQUEL [Suspect]
     Route: 048
     Dates: start: 20040401, end: 20040801
  7. SEROQUEL [Suspect]
     Route: 048
     Dates: start: 20040401, end: 20040801
  8. SEROQUEL [Suspect]
     Route: 048
     Dates: start: 20040401, end: 20040801
  9. SEROQUEL [Suspect]
     Route: 048
     Dates: start: 20050223
  10. SEROQUEL [Suspect]
     Route: 048
     Dates: start: 20050223
  11. SEROQUEL [Suspect]
     Route: 048
     Dates: start: 20050223
  12. SEROQUEL [Suspect]
     Route: 048
     Dates: start: 20050223
  13. SEROQUEL [Suspect]
     Route: 048
     Dates: start: 20050101, end: 20070101
  14. SEROQUEL [Suspect]
     Route: 048
     Dates: start: 20050101, end: 20070101
  15. SEROQUEL [Suspect]
     Route: 048
     Dates: start: 20050101, end: 20070101
  16. SEROQUEL [Suspect]
     Route: 048
     Dates: start: 20050101, end: 20070101
  17. GEODON [Concomitant]
     Dosage: 160 MG
     Dates: start: 20061001
  18. LEVAQUIN [Concomitant]
  19. GLUCOPHAGE [Concomitant]
  20. AMARYL [Concomitant]
  21. DEPAKOTE [Concomitant]
  22. ATIVAN [Concomitant]
  23. AMBIEN [Concomitant]
  24. FLEXERIL [Concomitant]
  25. EFFEXOR [Concomitant]
  26. XANAX [Concomitant]
  27. NOVOLIN 70/30 [Concomitant]
  28. LEXAPRO [Concomitant]
  29. LISINOPRIL [Concomitant]
  30. ZITHROMAX [Concomitant]
  31. ETODOLAC [Concomitant]
  32. NAPROXEN [Concomitant]
  33. METAGLIP [Concomitant]
  34. AMANTADINE [Concomitant]
  35. ATUSS [Concomitant]
  36. CITALOPRAM HYDROBROMIDE [Concomitant]
  37. RISPERDAL [Concomitant]
     Indication: BIPOLAR DISORDER
     Dates: start: 20030101
  38. RISPERDAL [Concomitant]
     Indication: DEPRESSION
     Dates: start: 20030101
  39. DEXATRIM [Concomitant]

REACTIONS (4)
  - BLOOD CHOLESTEROL INCREASED [None]
  - HYPERLIPIDAEMIA [None]
  - OBESITY [None]
  - TYPE 2 DIABETES MELLITUS [None]
